FAERS Safety Report 8118367-X (Version None)
Quarter: 2011Q4

REPORT INFORMATION
  Report Type: 
  Country: None (occurrence: None)
  Receive Date: 20111227
  Receipt Date: 20111027
  Transmission Date: 20120403
  Serious: No
  Sender: FDA-Public Use
  Company Number: PHEH2011US06842

PATIENT
  Age: 31 Year
  Sex: Female

DRUGS (5)
  1. XYZAL (LEVOCETIRIZINE HYDROCHLORIDE) [Concomitant]
  2. SINGULAIR [Concomitant]
  3. DYAZIDE [Concomitant]
  4. CONTRACEPTIVES (NO INGREDIENTS/SUBSTANCES) [Concomitant]
  5. GILENYA [Suspect]
     Indication: MULTIPLE SCLEROSIS
     Dosage: 0.5 MG, QD, ORAL
     Route: 048
     Dates: start: 20110524

REACTIONS (1)
  - WEIGHT INCREASED [None]
